FAERS Safety Report 14409743 (Version 6)
Quarter: 2018Q1

REPORT INFORMATION
  Report Type: Report from Study
  Country: FR (occurrence: FR)
  Receive Date: 20180119
  Receipt Date: 20180308
  Transmission Date: 20180509
  Serious: Yes (Other)
  Sender: FDA-Public Use
  Company Number: FR-ROCHE-2054827

PATIENT
  Age: 73 Year
  Sex: Male
  Weight: 90 kg

DRUGS (12)
  1. VENETOCLAX. [Suspect]
     Active Substance: VENETOCLAX
     Indication: DIFFUSE LARGE B-CELL LYMPHOMA
     Dosage: VENETOCLAX 200 TO 800 MILLIGRAMS?MOST RECENT DOSE PRIOR TO SAE ON 18/OCT/2016 (800 MG)
     Route: 048
     Dates: start: 20160523
  2. CYCLOPHOSPHAMIDE. [Suspect]
     Active Substance: CYCLOPHOSPHAMIDE
     Indication: DIFFUSE LARGE B-CELL LYMPHOMA
     Dosage: ON DAY 1 OF EACH 21-DAY CYCLE UP TO CYCLE 6?MOST RECENT DOSE PRIOR TO SAE ON 01/SEP/2016 (1650 MG)
     Route: 042
     Dates: start: 20160521
  3. PREDNISONE. [Suspect]
     Active Substance: PREDNISONE
     Indication: DIFFUSE LARGE B-CELL LYMPHOMA
     Dosage: ON DAYS 1-5 OF EACH 21-DAY CYCLE UP TO CYCLE 6?MOST RECENT DOSE ON 05/SEP/2016 (100 MG),
     Route: 048
     Dates: start: 20160519
  4. BICARBONATE DE SODIUM [Concomitant]
     Active Substance: SODIUM BICARBONATE
     Indication: ORAL FUNGAL INFECTION
     Route: 065
     Dates: start: 20160824
  5. OBINUTUZUMAB. [Suspect]
     Active Substance: OBINUTUZUMAB
     Indication: DIFFUSE LARGE B-CELL LYMPHOMA
     Dosage: ON DAYS 1, 8, 15 OF CYCLE 1 AND DAY 1 OF CYCLES 2-8?MOST RECENT DOSE PRIOR TO SAE ON 14/OCT/2016 (10
     Route: 042
     Dates: start: 20160519
  6. VINCRISTINE [Suspect]
     Active Substance: VINCRISTINE
     Indication: DIFFUSE LARGE B-CELL LYMPHOMA
     Dosage: MOST RECENT DOSE PRIOR TO SAE ON 01/SEP/2016 (2.0 MG/M2) AT 17:20
     Route: 042
     Dates: start: 20160521
  7. PRIMPERAN [Concomitant]
     Active Substance: METOCLOPRAMIDE HYDROCHLORIDE
     Indication: NAUSEA
     Route: 065
     Dates: start: 20160521
  8. ZELITREX [Concomitant]
     Active Substance: VALACYCLOVIR HYDROCHLORIDE
     Indication: PROPHYLAXIS
     Route: 065
     Dates: start: 20160602
  9. DOXORUBICIN [Suspect]
     Active Substance: DOXORUBICIN
     Indication: DIFFUSE LARGE B-CELL LYMPHOMA
     Dosage: MOST RECENT DOSE PRIOR TO SAE ON 01/SEP/2016 (100 MG) AT 16:35
     Route: 042
     Dates: start: 20160520
  10. BICARB MOUTHWASH [Concomitant]
     Indication: PROPHYLAXIS
     Route: 065
     Dates: start: 20160523
  11. VERAPAMIL [Concomitant]
     Active Substance: VERAPAMIL HYDROCHLORIDE
     Indication: HYPERTENSION
  12. FUNGIZONE [Concomitant]
     Active Substance: AMPHOTERICIN B
     Indication: ORAL FUNGAL INFECTION
     Route: 065
     Dates: start: 20160901

REACTIONS (1)
  - Squamous cell carcinoma of skin [Not Recovered/Not Resolved]

NARRATIVE: CASE EVENT DATE: 20171204
